FAERS Safety Report 13122195 (Version 4)
Quarter: 2017Q1

REPORT INFORMATION
  Report Type: Spontaneous
  Country: KR (occurrence: KR)
  Receive Date: 20170117
  Receipt Date: 20170316
  Transmission Date: 20170428
  Serious: Yes (Other)
  Sender: FDA-Public Use
  Company Number: KR-009507513-1701KOR006285

PATIENT
  Age: 47 Year
  Sex: Female
  Weight: 66.1 kg

DRUGS (28)
  1. FLUOROURACIL. [Concomitant]
     Active Substance: FLUOROURACIL
     Indication: VAGINAL CANCER
     Dosage: 1630 MG, DAILY, CYCLE 1 (STRENGTH: 1000MG/20ML)
     Route: 042
     Dates: start: 20160320, end: 20160323
  2. LASIX [Concomitant]
     Active Substance: FUROSEMIDE
     Indication: PROPHYLAXIS
     Dosage: 20 MG, ONCE (STRENGTH: 20MG/2ML)
     Route: 042
     Dates: start: 20160320, end: 20160320
  3. LASIX [Concomitant]
     Active Substance: FUROSEMIDE
     Indication: PREMEDICATION
  4. OMED [Concomitant]
     Indication: PROPHYLAXIS
     Dosage: 1 TABLET (10 MG), TWICE A DAY
     Route: 048
     Dates: start: 20160316
  5. EMEND (FOSAPREPITANT DIMEGLUMINE) [Suspect]
     Active Substance: FOSAPREPITANT DIMEGLUMINE
     Dosage: 150 MG, ONCE
     Route: 042
     Dates: start: 20160623, end: 20160623
  6. MANNITOL. [Concomitant]
     Active Substance: MANNITOL
     Indication: PROPHYLAXIS
     Dosage: 100 ML, ONCE (STRENGTH: 15%, 100ML)
     Route: 042
     Dates: start: 20160320, end: 20160320
  7. ZIPAN (TRAMADOL HYDROCHLORIDE) [Concomitant]
     Indication: PAIN
     Dosage: 2 MG, DAILY (STRENGTH: 100MG/2ML)
     Route: 042
     Dates: start: 20160115, end: 20160416
  8. MYPOL [Concomitant]
     Indication: PAIN
     Dosage: 1 CAPSULE, TWICE A DAY
     Route: 048
     Dates: start: 20160310
  9. EMEND (FOSAPREPITANT DIMEGLUMINE) [Suspect]
     Active Substance: FOSAPREPITANT DIMEGLUMINE
     Dosage: 150 MG, ONCE
     Route: 042
     Dates: start: 20161105, end: 20161105
  10. DUPHALAC [Concomitant]
     Active Substance: LACTULOSE
     Indication: CONSTIPATION PROPHYLAXIS
     Dosage: 30 ML, ONCE
     Route: 048
     Dates: start: 20160323, end: 20160323
  11. MUCOSTA [Concomitant]
     Active Substance: REBAMIPIDE
     Indication: PROPHYLAXIS
     Dosage: 1 TABLET (100 MG), THREE TIMES A DAY
     Route: 048
     Dates: start: 20160316
  12. TRIDOL (TRAMADOL HYDROCHLORIDE) [Concomitant]
     Dosage: 100 MG, TID
     Route: 048
     Dates: start: 20160321, end: 20160321
  13. EMEND (FOSAPREPITANT DIMEGLUMINE) [Suspect]
     Active Substance: FOSAPREPITANT DIMEGLUMINE
     Dosage: 150 MG, ONCE
     Route: 042
     Dates: start: 20160419, end: 20160419
  14. DEXAMETHASONE. [Concomitant]
     Active Substance: DEXAMETHASONE
     Indication: PROPHYLAXIS OF NAUSEA AND VOMITING
     Dosage: 3.75 MG, TWICE A DAY
     Route: 048
     Dates: start: 20160321, end: 20160323
  15. MANNITOL. [Concomitant]
     Active Substance: MANNITOL
     Indication: PREMEDICATION
  16. BESZYME [Concomitant]
     Dosage: 1 TABLET, THREE TIMES A DAY
     Route: 048
     Dates: start: 20160323
  17. STILNOX [Concomitant]
     Active Substance: ZOLPIDEM TARTRATE
     Indication: INSOMNIA
     Dosage: 1 TABLET (6.25 MG), DAILY
     Route: 048
     Dates: start: 20160321, end: 20160322
  18. STILNOX [Concomitant]
     Active Substance: ZOLPIDEM TARTRATE
     Indication: INSOMNIA
     Dosage: 1 TABLET (10 MG), DAILY
     Route: 048
     Dates: start: 20160322
  19. EMEND (FOSAPREPITANT DIMEGLUMINE) [Suspect]
     Active Substance: FOSAPREPITANT DIMEGLUMINE
     Indication: PROPHYLAXIS OF NAUSEA AND VOMITING
     Dosage: 150 MG, ONCE
     Route: 042
     Dates: start: 20160320, end: 20160320
  20. EMEND (FOSAPREPITANT DIMEGLUMINE) [Suspect]
     Active Substance: FOSAPREPITANT DIMEGLUMINE
     Dosage: 150 MG, ONCE
     Route: 042
     Dates: start: 20161205, end: 20161205
  21. DEXAMETHASONE SODIUM PHOSPHATE. [Concomitant]
     Active Substance: DEXAMETHASONE SODIUM PHOSPHATE
     Indication: PROPHYLAXIS OF NAUSEA AND VOMITING
     Dosage: 10 MG, ONCE
     Route: 042
     Dates: start: 20160320, end: 20160320
  22. ALOXI [Concomitant]
     Active Substance: PALONOSETRON HYDROCHLORIDE
     Indication: NAUSEA
     Dosage: 0.25 MG, ONCE
     Route: 042
     Dates: start: 20160320, end: 20160320
  23. ULCERLMIN [Concomitant]
     Active Substance: SUCRALFATE
     Indication: PROPHYLAXIS
     Dosage: 15 ML, THREE TIMES A DAY (STRENGTH: 1G/15ML)
     Route: 048
     Dates: start: 20160316
  24. TRIDOL (TRAMADOL HYDROCHLORIDE) [Concomitant]
     Indication: PAIN
     Dosage: 1 TABLET (100 MG), TWICE A DAY
     Route: 048
     Dates: start: 20160318
  25. CISPLATIN. [Concomitant]
     Active Substance: CISPLATIN
     Indication: VAGINAL CANCER
     Dosage: 97.8 MG, ONCE, CYCLE 1 (STRENGTH: 50MG/100ML)
     Route: 042
     Dates: start: 20160320, end: 20160320
  26. BESZYME [Concomitant]
     Indication: PROPHYLAXIS
     Dosage: 1 TABLET, ONCE
     Route: 048
     Dates: start: 20160322, end: 20160322
  27. EMEND (FOSAPREPITANT DIMEGLUMINE) [Suspect]
     Active Substance: FOSAPREPITANT DIMEGLUMINE
     Dosage: 150 MG, ONCE
     Route: 042
     Dates: start: 20160819, end: 20160819
  28. ARESTAL [Concomitant]
     Active Substance: LOPERAMIDE OXIDE
     Indication: CONSTIPATION PROPHYLAXIS
     Dosage: 4 TABELTS (4 MG), DAILY
     Route: 048
     Dates: start: 20160330

REACTIONS (17)
  - Anxiety [Recovered/Resolved]
  - Abdominal pain [Recovered/Resolved]
  - Haematochezia [Recovered/Resolved]
  - Asthenia [Recovered/Resolved]
  - Proctalgia [Recovered/Resolved]
  - Vulvovaginal pain [Recovered/Resolved]
  - Depression [Recovered/Resolved]
  - Haemoglobin decreased [Not Recovered/Not Resolved]
  - Drug effect incomplete [Unknown]
  - Neck pain [Recovered/Resolved]
  - Anal haemorrhage [Recovered/Resolved]
  - Vaginal haemorrhage [Recovered/Resolved]
  - Insomnia [Recovered/Resolved]
  - Oedema [Recovered/Resolved]
  - Nausea [Recovered/Resolved]
  - Intervertebral disc protrusion [Recovered/Resolved]
  - Urticaria [Recovered/Resolved]

NARRATIVE: CASE EVENT DATE: 201603
